FAERS Safety Report 14819705 (Version 7)
Quarter: 2024Q1

REPORT INFORMATION
  Report Type: Spontaneous
  Country: DE (occurrence: DE)
  Receive Date: 20180427
  Receipt Date: 20240209
  Transmission Date: 20240410
  Serious: Yes (Life-Threatening, Other)
  Sender: FDA-Public Use
  Company Number: None

PATIENT
  Age: 86 Year
  Sex: Female
  Weight: 56 kg

DRUGS (174)
  1. ASPIRIN [Suspect]
     Active Substance: ASPIRIN
     Indication: Coagulopathy
     Dosage: 100 MILLIGRAM, QD
     Route: 048
     Dates: start: 20000828, end: 20000831
  2. ASPIRIN [Suspect]
     Active Substance: ASPIRIN
     Indication: Product used for unknown indication
     Dosage: 100 MILLIGRAM, QD
     Route: 048
     Dates: start: 20000914, end: 20000917
  3. OMEPRAZOLE MAGNESIUM [Suspect]
     Active Substance: OMEPRAZOLE MAGNESIUM
     Indication: Prophylaxis against gastrointestinal ulcer
     Dosage: 20 MG, QD (DAILY DOSE)
     Route: 048
     Dates: start: 20000820, end: 20000917
  4. ASPIRIN [Suspect]
     Active Substance: ASPIRIN
     Indication: Coagulopathy
     Dosage: 100 MILLIGRAM, QD
     Route: 048
     Dates: start: 20000828, end: 20000831
  5. ASPIRIN [Suspect]
     Active Substance: ASPIRIN
     Indication: Coagulopathy
     Dosage: 100 MILLIGRAM, QD
     Route: 048
     Dates: start: 20000914, end: 20000917
  6. CLONIDINE HYDROCHLORIDE [Suspect]
     Active Substance: CLONIDINE HYDROCHLORIDE
     Indication: Coronary artery disease
     Dosage: UNK
     Route: 042
     Dates: start: 20000913, end: 20000913
  7. CLONIDINE HYDROCHLORIDE [Suspect]
     Active Substance: CLONIDINE HYDROCHLORIDE
     Indication: Hypertension
     Dosage: UNK
     Route: 042
     Dates: start: 20000913, end: 20000913
  8. CLONIDINE HYDROCHLORIDE [Suspect]
     Active Substance: CLONIDINE HYDROCHLORIDE
     Dosage: UNK
     Route: 042
  9. CLONIDINE HYDROCHLORIDE [Suspect]
     Active Substance: CLONIDINE HYDROCHLORIDE
     Dosage: UNK
     Route: 042
  10. CLONIDINE HYDROCHLORIDE [Suspect]
     Active Substance: CLONIDINE HYDROCHLORIDE
     Dosage: UNK
     Route: 042
  11. CLONIDINE HYDROCHLORIDE [Suspect]
     Active Substance: CLONIDINE HYDROCHLORIDE
     Route: 042
  12. DILTIAZEM [Suspect]
     Active Substance: DILTIAZEM
     Indication: Product used for unknown indication
     Dosage: UNK
     Route: 042
     Dates: start: 20000913, end: 20000913
  13. PREDNISOLONE [Suspect]
     Active Substance: PREDNISOLONE
     Indication: Dermatitis bullous
     Dosage: 40 MG, QD
     Route: 048
  14. PREDNISOLONE [Suspect]
     Active Substance: PREDNISOLONE
     Dosage: 40 MG, QD
     Route: 048
  15. PREDNISOLONE [Suspect]
     Active Substance: PREDNISOLONE
     Dosage: 40 MG, QD
     Route: 048
  16. PREDNISOLONE [Suspect]
     Active Substance: PREDNISOLONE
     Dosage: 40 MILLIGRAM, QD
     Route: 048
  17. PREDNISOLONE [Suspect]
     Active Substance: PREDNISOLONE
     Dosage: 40 MILLIGRAM, QD
     Route: 048
  18. PREDNISOLONE [Suspect]
     Active Substance: PREDNISOLONE
     Indication: Dermatitis bullous
     Dosage: 50 MG, QD
     Route: 048
  19. PREDNISOLONE [Suspect]
     Active Substance: PREDNISOLONE
     Dosage: 50 MILLIGRAM, QD
     Route: 048
  20. PREDNISOLONE [Suspect]
     Active Substance: PREDNISOLONE
     Dosage: 50 MILLIGRAM, QD
     Route: 048
  21. PREDNISOLONE [Suspect]
     Active Substance: PREDNISOLONE
     Dosage: 50 MILLIGRAM, QD
     Route: 048
  22. PREDNISOLONE [Suspect]
     Active Substance: PREDNISOLONE
     Dosage: 50 MILLIGRAM, QD
     Route: 048
  23. PREDNISOLONE [Suspect]
     Active Substance: PREDNISOLONE
     Indication: Pemphigoid
     Dosage: 60 MG, QD
     Route: 048
  24. PREDNISOLONE [Suspect]
     Active Substance: PREDNISOLONE
     Dosage: 60 MILLIGRAM, QD
     Route: 048
  25. PREDNISOLONE [Suspect]
     Active Substance: PREDNISOLONE
     Dosage: 60 MILLIGRAM, QD
     Route: 048
  26. PREDNISOLONE [Suspect]
     Active Substance: PREDNISOLONE
     Dosage: 60 MILLIGRAM, QD
     Route: 048
  27. PREDNISOLONE [Suspect]
     Active Substance: PREDNISOLONE
     Dosage: 60 MILLIGRAM, QD
     Route: 048
  28. PREDNISOLONE [Suspect]
     Active Substance: PREDNISOLONE
     Dosage: UNK
     Route: 048
     Dates: start: 20000820, end: 20000917
  29. PREDNISOLONE [Suspect]
     Active Substance: PREDNISOLONE
     Indication: Pemphigoid
     Dosage: UNK
     Route: 048
     Dates: start: 20000820, end: 20000917
  30. PREDNISOLONE [Suspect]
     Active Substance: PREDNISOLONE
     Dosage: 80 MG, QD
     Route: 048
  31. PREDNISOLONE [Suspect]
     Active Substance: PREDNISOLONE
     Dosage: 80 MG, QD
     Route: 048
  32. PREDNISOLONE [Suspect]
     Active Substance: PREDNISOLONE
     Dosage: 80 MG, QD
     Route: 048
  33. PREDNISOLONE [Suspect]
     Active Substance: PREDNISOLONE
     Dosage: 80 MILLIGRAM, QD
     Route: 048
  34. PREDNISOLONE [Suspect]
     Active Substance: PREDNISOLONE
     Dosage: 80 MILLIGRAM, QD
     Route: 048
  35. DIAZEPAM [Suspect]
     Active Substance: DIAZEPAM
     Indication: Sedative therapy
     Dosage: UNK
     Route: 042
     Dates: start: 20000913, end: 20000913
  36. DIAZEPAM [Suspect]
     Active Substance: DIAZEPAM
     Indication: Sedative therapy
  37. FENTANYL [Suspect]
     Active Substance: FENTANYL\FENTANYL CITRATE
     Indication: Pain
     Dosage: 1 DOSAGE FORM, Q3D
     Route: 062
     Dates: start: 20000820, end: 20000916
  38. FENTANYL [Suspect]
     Active Substance: FENTANYL\FENTANYL CITRATE
     Dosage: 1 DOSAGE FORM, Q3D
     Route: 062
     Dates: start: 20000820, end: 20000916
  39. FENTANYL [Suspect]
     Active Substance: FENTANYL\FENTANYL CITRATE
     Dosage: 125 MICROGRAM, QH, MICROGRAMS PER INHALATION
     Route: 062
  40. FENTANYL [Suspect]
     Active Substance: FENTANYL\FENTANYL CITRATE
     Dosage: 150 MCG, QH, MICROGRAMS PER INHALATION, 72 QH
     Route: 062
     Dates: start: 20000820, end: 20000916
  41. FENTANYL [Suspect]
     Active Substance: FENTANYL\FENTANYL CITRATE
     Dosage: 150 DOSAGE FORM, Q3D (1 DF)
     Route: 062
     Dates: start: 20000820, end: 20000916
  42. FENTANYL [Suspect]
     Active Substance: FENTANYL\FENTANYL CITRATE
     Dosage: 50 MCG, QH, MICROGRAMS PER INHALATION, 72 QH
     Route: 062
  43. GLYBURIDE [Suspect]
     Active Substance: GLYBURIDE
     Indication: Diabetes mellitus
     Dosage: 3 DOSAGE FORM
     Route: 048
     Dates: start: 20000820, end: 20000917
  44. FRAGMIN [Suspect]
     Active Substance: DALTEPARIN SODIUM
     Indication: Coagulopathy
     Dosage: UNK
     Route: 058
     Dates: start: 20000820, end: 20000917
  45. FRAGMIN [Suspect]
     Active Substance: DALTEPARIN SODIUM
     Indication: Thrombosis prophylaxis
     Dosage: UNK
     Route: 065
  46. INSULIN NOS [Suspect]
     Active Substance: INSULIN NOS
     Dosage: UNK
     Route: 065
     Dates: end: 20000917
  47. INSULIN NOS [Suspect]
     Active Substance: INSULIN NOS
     Dosage: UNK (SC EXCEPT ON 13-SEP-2000 WHEN GIVEN IV)
     Route: 042
     Dates: start: 20000913, end: 20000913
  48. INSULIN NOS [Suspect]
     Active Substance: INSULIN NOS
     Indication: Diabetes mellitus
     Dosage: UNK (SC EXCEPT ON 13-SEP-2000 WHEN GIVEN IV)
     Route: 058
     Dates: start: 20000820, end: 20000917
  49. LIDOCAINE HYDROCHLORIDE [Suspect]
     Active Substance: LIDOCAINE HYDROCHLORIDE
     Indication: Local anaesthesia
     Dosage: UNK
     Route: 058
     Dates: start: 20000913, end: 20000913
  50. LIDOCAINE HYDROCHLORIDE [Suspect]
     Active Substance: LIDOCAINE HYDROCHLORIDE
     Indication: Product used for unknown indication
  51. NOREPINEPHRINE [Suspect]
     Active Substance: NOREPINEPHRINE
     Dosage: 8 MILLIGRAM, QD
     Route: 042
  52. NOREPINEPHRINE [Suspect]
     Active Substance: NOREPINEPHRINE
     Dosage: 8 MILLIGRAM, QD
     Route: 042
  53. NOREPINEPHRINE [Suspect]
     Active Substance: NOREPINEPHRINE
     Indication: Local anaesthesia
     Dosage: UNK
     Route: 042
     Dates: start: 20000913, end: 20000913
  54. NOREPINEPHRINE [Suspect]
     Active Substance: NOREPINEPHRINE
     Indication: Coronary artery disease
     Dosage: UNK,NORADRENALINE
     Route: 042
     Dates: start: 20000913
  55. MOLSIDOMINE [Suspect]
     Active Substance: MOLSIDOMINE
     Indication: Coronary artery disease
     Dosage: 1 DOSAGE FORM, QD, (1 DF, 1 DOSE DAILY)
     Route: 048
     Dates: start: 20000820, end: 20000914
  56. MOLSIDOMINE [Suspect]
     Active Substance: MOLSIDOMINE
     Indication: Product used for unknown indication
     Dosage: 1 DOSAGE FORM, QD, (1 DF, 1 DOSE DAILY)
     Route: 048
     Dates: start: 20000820, end: 20000914
  57. MOLSIDOMINE [Suspect]
     Active Substance: MOLSIDOMINE
     Indication: Coagulopathy
     Dosage: 8 MG, QD
     Route: 048
     Dates: start: 20000820, end: 20000914
  58. MOLSIDOMINE [Suspect]
     Active Substance: MOLSIDOMINE
     Indication: Thrombosis prophylaxis
     Dosage: UNK
     Route: 058
     Dates: start: 20000820, end: 20000917
  59. MOLSIDOMINE [Suspect]
     Active Substance: MOLSIDOMINE
     Indication: Coronary artery disease
  60. ISOSORBIDE MONONITRATE [Suspect]
     Active Substance: ISOSORBIDE MONONITRATE
     Indication: Angina pectoris
     Dosage: 1 DOSAGE FORM, QD
     Route: 048
     Dates: start: 20000820, end: 20000917
  61. LORMETAZEPAM [Suspect]
     Active Substance: LORMETAZEPAM
     Dosage: 2 DF, QD
     Route: 065
  62. LORMETAZEPAM [Suspect]
     Active Substance: LORMETAZEPAM
     Dosage: 2 DF, QD
     Route: 065
  63. LORMETAZEPAM [Suspect]
     Active Substance: LORMETAZEPAM
     Indication: Sedation
     Dosage: 2 DF, QD (1 DOSE DAILY SUSPENSION AEROSOL)
     Route: 048
     Dates: start: 20000913, end: 20000913
  64. LORMETAZEPAM [Suspect]
     Active Substance: LORMETAZEPAM
     Dosage: 2 DF, QD (1 DOSE DAILY SUSPENSION AEROSOL)
     Route: 048
     Dates: start: 20000913, end: 20000913
  65. LORMETAZEPAM [Suspect]
     Active Substance: LORMETAZEPAM
     Dosage: 2 DOSAGE FORM, QD
     Route: 065
  66. LORMETAZEPAM [Suspect]
     Active Substance: LORMETAZEPAM
     Dosage: 2 DOSAGE FORM, QD
     Route: 065
  67. LORMETAZEPAM [Suspect]
     Active Substance: LORMETAZEPAM
     Indication: Sedative therapy
     Dosage: UNK
     Route: 065
  68. LORMETAZEPAM [Suspect]
     Active Substance: LORMETAZEPAM
     Route: 065
  69. LORMETAZEPAM [Suspect]
     Active Substance: LORMETAZEPAM
     Route: 065
  70. LORMETAZEPAM [Suspect]
     Active Substance: LORMETAZEPAM
     Route: 065
  71. LORMETAZEPAM [Suspect]
     Active Substance: LORMETAZEPAM
     Route: 065
  72. NOREPINEPHRINE [Suspect]
     Active Substance: NOREPINEPHRINE
     Dosage: 3 DOSAGE FORM
     Route: 042
     Dates: start: 20000913, end: 20000913
  73. NOREPINEPHRINE [Suspect]
     Active Substance: NOREPINEPHRINE
     Indication: Coronary artery disease
     Dosage: UNK
     Route: 042
     Dates: start: 20000913, end: 20000913
  74. NORTRIPTYLINE [Suspect]
     Active Substance: NORTRIPTYLINE
     Indication: Coronary artery disease
     Dosage: 75 MG, QD
     Route: 042
     Dates: start: 20000913, end: 20000913
  75. NORTRIPTYLINE [Suspect]
     Active Substance: NORTRIPTYLINE
     Dosage: 75 MILLIGRAM, QD
     Route: 042
     Dates: start: 20000913, end: 20000913
  76. NORTRIPTYLINE [Suspect]
     Active Substance: NORTRIPTYLINE
     Indication: Coronary artery disease
     Route: 042
     Dates: start: 20000913
  77. ACETAMINOPHEN\CAFFEINE\PROPYPHENAZONE [Suspect]
     Active Substance: ACETAMINOPHEN\CAFFEINE\PROPYPHENAZONE
     Indication: General symptom
     Dosage: 20 GTT DROPS, QD (20 GTT, 1 DOSE DAILY)
     Route: 048
     Dates: start: 20000820, end: 20000917
  78. ACETAMINOPHEN\CAFFEINE\PROPYPHENAZONE [Suspect]
     Active Substance: ACETAMINOPHEN\CAFFEINE\PROPYPHENAZONE
     Indication: Pain
     Dosage: UNK
     Route: 048
  79. ACETAMINOPHEN\CAFFEINE\PROPYPHENAZONE [Suspect]
     Active Substance: ACETAMINOPHEN\CAFFEINE\PROPYPHENAZONE
     Dosage: UNK
     Route: 048
  80. ACETAMINOPHEN\CAFFEINE\PROPYPHENAZONE [Suspect]
     Active Substance: ACETAMINOPHEN\CAFFEINE\PROPYPHENAZONE
     Indication: General symptom
     Dosage: UNK
     Route: 065
  81. ACETAMINOPHEN\CAFFEINE\PROPYPHENAZONE [Suspect]
     Active Substance: ACETAMINOPHEN\CAFFEINE\PROPYPHENAZONE
     Dosage: UNK
     Route: 065
  82. OMEPRAZOLE MAGNESIUM [Suspect]
     Active Substance: OMEPRAZOLE MAGNESIUM
     Indication: Prophylaxis against gastrointestinal ulcer
     Dosage: 20 MG, QD
     Route: 048
     Dates: start: 20000820, end: 20000917
  83. OMEPRAZOLE MAGNESIUM [Suspect]
     Active Substance: OMEPRAZOLE MAGNESIUM
     Indication: Prophylaxis against gastrointestinal ulcer
  84. ESTRIOL [Suspect]
     Active Substance: ESTRIOL
     Indication: Vulvovaginal disorder
     Dosage: 1 DF, 1 DOSE DAILY DOSE UNIT: DOSAGE FORM
     Route: 067
     Dates: start: 20000820, end: 20000906
  85. PLAVIX [Suspect]
     Active Substance: CLOPIDOGREL BISULFATE
     Dosage: 1 DOSAGE FORM, QD (75 MG, 1 DOSE DAILY)
     Route: 048
     Dates: start: 20000913, end: 20000917
  86. PLAVIX [Suspect]
     Active Substance: CLOPIDOGREL BISULFATE
     Indication: Coagulopathy
     Dosage: 4 DF
     Route: 065
  87. PLAVIX [Suspect]
     Active Substance: CLOPIDOGREL BISULFATE
     Indication: Thrombosis prophylaxis
     Dosage: 75 MILLIGRAM, QD
     Route: 048
     Dates: start: 20000913, end: 20000917
  88. PLAVIX [Suspect]
     Active Substance: CLOPIDOGREL BISULFATE
     Indication: Coagulopathy
     Dosage: UNK
     Route: 065
  89. PLAVIX [Suspect]
     Active Substance: CLOPIDOGREL BISULFATE
     Dosage: UNK
     Route: 065
  90. TORSEMIDE [Suspect]
     Active Substance: TORSEMIDE
     Indication: Coronary artery disease
     Dosage: 140 MG
     Route: 065
  91. CLEMASTINE FUMARATE [Suspect]
     Active Substance: CLEMASTINE FUMARATE
     Indication: Pemphigoid
     Dosage: 2 DF, QD
     Route: 048
     Dates: start: 20000820, end: 20000828
  92. CLEMASTINE FUMARATE [Suspect]
     Active Substance: CLEMASTINE FUMARATE
     Indication: Pemphigoid
     Dosage: 2 DOSAGE FORM, QD
     Route: 048
     Dates: start: 20000820, end: 20000828
  93. CLEMASTINE FUMARATE [Suspect]
     Active Substance: CLEMASTINE FUMARATE
     Indication: Pemphigoid
     Dosage: 4 DOSAGE FORM, QD
     Route: 048
     Dates: start: 20000820, end: 20000828
  94. TORSEMIDE [Suspect]
     Active Substance: TORSEMIDE
     Dosage: 140 MG
     Route: 065
  95. TORSEMIDE [Suspect]
     Active Substance: TORSEMIDE
     Dosage: 140 MG
     Route: 065
  96. TORSEMIDE [Suspect]
     Active Substance: TORSEMIDE
     Dosage: 140 MILLIGRAM
     Route: 065
  97. TORSEMIDE [Suspect]
     Active Substance: TORSEMIDE
     Dosage: 140 MILLIGRAM
     Route: 065
  98. TORSEMIDE [Suspect]
     Active Substance: TORSEMIDE
     Indication: Cardiac failure
     Dosage: 5 MILLIGRAM, QD (1 DOSE DAILY)
     Route: 048
     Dates: start: 20000820, end: 20000917
  99. TORSEMIDE [Suspect]
     Active Substance: TORSEMIDE
     Indication: Cardiac failure
     Dosage: UNK
     Route: 065
  100. TORSEMIDE [Suspect]
     Active Substance: TORSEMIDE
     Dosage: UNK
     Route: 065
  101. TORSEMIDE [Suspect]
     Active Substance: TORSEMIDE
     Route: 065
  102. VIOXX [Suspect]
     Active Substance: ROFECOXIB
     Indication: Rheumatic disorder
     Dosage: 100 MG, QD
     Route: 048
     Dates: start: 20000914, end: 20000917
  103. VIOXX [Suspect]
     Active Substance: ROFECOXIB
     Indication: Rheumatic disorder
     Dosage: 25 MILLIGRAM, QD (1 DOSE DAILY)
     Route: 048
     Dates: start: 20000907, end: 20000917
  104. VIOXX [Suspect]
     Active Substance: ROFECOXIB
     Dosage: 25 MILLIGRAM, QD (1 DOSE DAILY)
     Route: 048
     Dates: start: 20000907, end: 20000917
  105. VIOXX [Suspect]
     Active Substance: ROFECOXIB
     Dosage: UNK
     Route: 065
  106. VIOXX [Suspect]
     Active Substance: ROFECOXIB
     Dosage: UNK
     Route: 065
  107. VIOXX [Suspect]
     Active Substance: ROFECOXIB
     Dosage: UNK
     Route: 065
  108. VIOXX [Suspect]
     Active Substance: ROFECOXIB
     Route: 065
  109. VIOXX [Suspect]
     Active Substance: ROFECOXIB
     Route: 065
  110. VIOXX [Suspect]
     Active Substance: ROFECOXIB
     Route: 065
  111. XYLOCAINE [Suspect]
     Active Substance: LIDOCAINE HYDROCHLORIDE
     Indication: Local anaesthesia
     Dosage: UNK
     Route: 058
     Dates: start: 20000913, end: 20000913
  112. XYLOCAINE [Suspect]
     Active Substance: LIDOCAINE HYDROCHLORIDE
     Dosage: UNK
     Route: 058
     Dates: start: 20000913, end: 20000913
  113. XYLOCAINE [Suspect]
     Active Substance: LIDOCAINE HYDROCHLORIDE
     Dosage: UNK
     Route: 058
  114. XYLOCAINE [Suspect]
     Active Substance: LIDOCAINE HYDROCHLORIDE
     Dosage: UNK
     Route: 058
  115. OMEPRAZOLE [Concomitant]
     Active Substance: OMEPRAZOLE
     Indication: Prophylaxis against gastrointestinal ulcer
     Dosage: 20 MILLIGRAM, QD (1 DOSE DAILY)
     Route: 048
     Dates: start: 20000820, end: 20000917
  116. OMEPRAZOLE [Concomitant]
     Active Substance: OMEPRAZOLE
     Indication: Prophylaxis against gastrointestinal ulcer
  117. CALCIUM GLUCONATE [Concomitant]
     Active Substance: CALCIUM GLUCONATE
     Indication: Osteoporosis
     Dosage: 1 DOSAGE FORM, QD (1 DOSE DAILY)
     Route: 048
     Dates: start: 20000820, end: 20000917
  118. CALCIUM [Concomitant]
     Active Substance: CALCIUM
     Indication: Osteoporosis
     Dosage: 1 DOSAGE FORM, QD, (1 DF, 1 DOSE DAILY)
     Route: 048
     Dates: start: 20000820, end: 20000917
  119. CALCIUM CHLORIDE [Concomitant]
     Active Substance: CALCIUM CHLORIDE
     Indication: Fluid retention
     Dosage: UNK
     Route: 042
     Dates: start: 20000913, end: 20000914
  120. CALCIUM CHLORIDE [Concomitant]
     Active Substance: CALCIUM CHLORIDE
     Indication: Electrolyte depletion
     Dosage: UNK
     Route: 065
  121. CALCIUM CHLORIDE [Concomitant]
     Active Substance: CALCIUM CHLORIDE
     Dosage: UNK
     Route: 065
     Dates: start: 20000820, end: 20000917
  122. CALCIUM CHLORIDE [Concomitant]
     Active Substance: CALCIUM CHLORIDE
     Dosage: UNK
     Route: 065
  123. CALCIUM CHLORIDE [Concomitant]
     Active Substance: CALCIUM CHLORIDE
     Dosage: UNK
     Route: 065
  124. CALCIUM CHLORIDE [Concomitant]
     Active Substance: CALCIUM CHLORIDE
     Dosage: UNK
     Route: 065
  125. CALCIUM CHLORIDE [Concomitant]
     Active Substance: CALCIUM CHLORIDE
     Dosage: UNK
     Route: 065
  126. CALCIUM CHLORIDE [Concomitant]
     Active Substance: CALCIUM CHLORIDE
     Indication: Electrolyte depletion
     Route: 065
  127. CALCIUM CHLORIDE [Concomitant]
     Active Substance: CALCIUM CHLORIDE
     Indication: Osteoporosis
     Route: 065
  128. CALCIUM CHLORIDE [Concomitant]
     Active Substance: CALCIUM CHLORIDE
     Route: 065
  129. CALCIUM CHLORIDE [Concomitant]
     Active Substance: CALCIUM CHLORIDE
     Route: 065
  130. CALCIUM CHLORIDE [Concomitant]
     Active Substance: CALCIUM CHLORIDE
     Route: 065
  131. CALCIUM GLUCONATE [Concomitant]
     Active Substance: CALCIUM GLUCONATE
     Indication: Osteoporosis
     Dosage: 1 DOSAGE FORM, QD (1 DOSE DAILY)
     Route: 048
     Dates: start: 20000820, end: 20000917
  132. COTRIM [Concomitant]
     Active Substance: SULFAMETHOXAZOLE\TRIMETHOPRIM
     Indication: Urinary tract infection
     Dosage: 1 DOSAGE FORM, QD (1 DOSE DAILY)
     Route: 048
     Dates: start: 20000916, end: 20000917
  133. PREDNISOLONE [Concomitant]
     Active Substance: PREDNISOLONE
     Indication: Dermatitis bullous
     Dosage: UNK
     Route: 048
     Dates: start: 20000820, end: 20000917
  134. PREDNISOLONE [Concomitant]
     Active Substance: PREDNISOLONE
     Indication: Pemphigoid
     Dosage: UNK
     Route: 065
  135. PREDNISOLONE [Concomitant]
     Active Substance: PREDNISOLONE
     Dosage: UNK
     Route: 065
  136. FENTANYL [Concomitant]
     Active Substance: FENTANYL\FENTANYL CITRATE
     Indication: Pain
     Dosage: 1 DOSAGE FORM
     Route: 062
     Dates: start: 20000820, end: 20000916
  137. FENTANYL [Concomitant]
     Active Substance: FENTANYL\FENTANYL CITRATE
     Indication: Pain
     Dosage: 1 DOSAGE FORM
     Route: 065
     Dates: start: 20000820, end: 20000916
  138. FENTANYL [Concomitant]
     Active Substance: FENTANYL\FENTANYL CITRATE
     Indication: Pain
     Dosage: 1 DOSAGE FORM
     Route: 062
     Dates: start: 20000820, end: 20000916
  139. FENTANYL [Concomitant]
     Active Substance: FENTANYL\FENTANYL CITRATE
     Indication: Pain
  140. FENTANYL [Concomitant]
     Active Substance: FENTANYL\FENTANYL CITRATE
     Indication: Pain
  141. FRAGMIN [Concomitant]
     Active Substance: DALTEPARIN SODIUM
     Indication: Coagulopathy
     Dosage: UNK
     Route: 058
     Dates: start: 20000820, end: 20000917
  142. FRAGMIN [Concomitant]
     Active Substance: DALTEPARIN SODIUM
     Indication: Thrombosis prophylaxis
     Dosage: UNK
     Route: 058
  143. FRAGMIN [Concomitant]
     Active Substance: DALTEPARIN SODIUM
     Dosage: UNK
     Route: 065
  144. GLYBURIDE [Concomitant]
     Active Substance: GLYBURIDE
     Indication: Diabetes mellitus
     Dosage: 3 DF
     Route: 048
     Dates: start: 20000820, end: 20000917
  145. DEXTROSE [Concomitant]
     Active Substance: DEXTROSE\DEXTROSE MONOHYDRATE
     Indication: Cardiovascular disorder
     Dosage: UNK
     Route: 042
     Dates: start: 20000913, end: 20000913
  146. DEXTROSE [Concomitant]
     Active Substance: DEXTROSE\DEXTROSE MONOHYDRATE
     Dosage: UNK
     Route: 042
     Dates: start: 20000913, end: 20000913
  147. DEXTROSE [Concomitant]
     Active Substance: DEXTROSE\DEXTROSE MONOHYDRATE
     Indication: Cardiovascular disorder
     Dosage: UNK
     Route: 065
  148. DEXTROSE [Concomitant]
     Active Substance: DEXTROSE\DEXTROSE MONOHYDRATE
     Indication: Diabetes mellitus
     Dosage: UNK
     Route: 065
  149. DEXTROSE [Concomitant]
     Active Substance: DEXTROSE\DEXTROSE MONOHYDRATE
     Dosage: UNK
     Route: 065
  150. MOLSIDOMINE [Concomitant]
     Active Substance: MOLSIDOMINE
     Indication: Coronary artery disease
     Dosage: 1 DOSAGE FORM, QD (1 DF, 1 DOSE DAILY)
     Route: 065
     Dates: start: 20000820, end: 20000914
  151. NOREPINEPHRINE [Concomitant]
     Active Substance: NOREPINEPHRINE
     Indication: Diabetes mellitus
     Dosage: 3 DOSAGE FORM
     Route: 042
     Dates: start: 20000913, end: 20000913
  152. OMEPRAZOLE [Concomitant]
     Active Substance: OMEPRAZOLE
     Indication: Prophylaxis against gastrointestinal ulcer
     Dosage: 20 MILLIGRAM, QD, (20 MG, 1 DOSE DAILY)
     Route: 048
     Dates: start: 20000820, end: 20000917
  153. OMEPRAZOLE [Concomitant]
     Active Substance: OMEPRAZOLE
     Indication: Prophylaxis against gastrointestinal ulcer
     Dosage: 40 MG, QD
     Route: 048
  154. OMEPRAZOLE MAGNESIUM [Concomitant]
     Active Substance: OMEPRAZOLE MAGNESIUM
     Indication: Prophylaxis against gastrointestinal ulcer
     Dosage: 20 MILLIGRAM, QD
     Route: 048
     Dates: start: 20000820, end: 20000917
  155. POTASSIUM CHLORIDE [Concomitant]
     Active Substance: POTASSIUM CHLORIDE
     Indication: Electrolyte depletion
     Dosage: UNK
     Route: 042
     Dates: start: 20000913, end: 20000914
  156. POTASSIUM CHLORIDE [Concomitant]
     Active Substance: POTASSIUM CHLORIDE
     Indication: Diabetes mellitus
     Dosage: UNK
     Route: 065
  157. POTASSIUM CHLORIDE [Concomitant]
     Active Substance: POTASSIUM CHLORIDE
     Indication: Electrolyte depletion
     Dosage: UNK
     Route: 065
  158. POTASSIUM CHLORIDE [Concomitant]
     Active Substance: POTASSIUM CHLORIDE
     Indication: Fluid retention
     Dosage: UNK
     Route: 065
  159. POTASSIUM CHLORIDE [Concomitant]
     Active Substance: POTASSIUM CHLORIDE
     Dosage: UNK
     Route: 065
     Dates: start: 20000820, end: 20000917
  160. POTASSIUM CHLORIDE [Concomitant]
     Active Substance: POTASSIUM CHLORIDE
     Dosage: UNK
     Route: 065
  161. POTASSIUM CHLORIDE [Concomitant]
     Active Substance: POTASSIUM CHLORIDE
     Dosage: UNK
     Route: 065
  162. POTASSIUM CHLORIDE [Concomitant]
     Active Substance: POTASSIUM CHLORIDE
     Dosage: UNK
     Route: 065
  163. POTASSIUM CHLORIDE [Concomitant]
     Active Substance: POTASSIUM CHLORIDE
     Dosage: UNK
     Route: 065
  164. POTASSIUM CHLORIDE [Concomitant]
     Active Substance: POTASSIUM CHLORIDE
     Dosage: UNK
     Route: 065
  165. POTASSIUM CHLORIDE [Concomitant]
     Active Substance: POTASSIUM CHLORIDE
     Route: 065
  166. POTASSIUM CHLORIDE [Concomitant]
     Active Substance: POTASSIUM CHLORIDE
     Route: 065
  167. POTASSIUM CHLORIDE [Concomitant]
     Active Substance: POTASSIUM CHLORIDE
     Route: 065
  168. PREDNISONE [Concomitant]
     Active Substance: PREDNISONE
     Indication: Product used for unknown indication
     Dosage: UNK
     Route: 065
  169. PREDNISONE [Concomitant]
     Active Substance: PREDNISONE
     Dosage: UNK
     Route: 065
  170. RINGER BAXTER [Concomitant]
     Indication: Electrolyte depletion
     Dosage: UNK
     Route: 042
     Dates: start: 20000913, end: 20000914
  171. SODIUM CHLORIDE [Concomitant]
     Active Substance: SODIUM CHLORIDE
     Indication: Electrolyte depletion
     Dosage: UNK
     Route: 042
     Dates: start: 20000913, end: 20000913
  172. SODIUM CHLORIDE [Concomitant]
     Active Substance: SODIUM CHLORIDE
     Indication: Electrolyte depletion
     Dosage: UNK
     Route: 042
     Dates: start: 20000913, end: 20000914
  173. SODIUM CHLORIDE [Concomitant]
     Active Substance: SODIUM CHLORIDE
     Dosage: UNK
     Route: 042
     Dates: start: 20000913, end: 20000914
  174. SULFAMETHOXAZOLE [Concomitant]
     Active Substance: SULFAMETHOXAZOLE
     Indication: Urinary tract infection
     Dosage: 1 DF, QD
     Route: 048
     Dates: start: 20000916, end: 20000917

REACTIONS (7)
  - Toxic epidermal necrolysis [Recovered/Resolved]
  - Conjunctivitis [Recovered/Resolved]
  - Mucosal erosion [Recovered/Resolved]
  - Mouth ulceration [Recovered/Resolved]
  - Erythema [Recovered/Resolved]
  - Blister [Recovered/Resolved]
  - Genital erosion [Recovered/Resolved]

NARRATIVE: CASE EVENT DATE: 20000916
